FAERS Safety Report 8846697 (Version 6)
Quarter: 2013Q2

REPORT INFORMATION
  Report Type: Report from Study
  Country: DE (occurrence: DE)
  Receive Date: 20121017
  Receipt Date: 20130429
  Transmission Date: 20140414
  Serious: Yes (Hospitalization)
  Sender: FDA-Public Use
  Company Number: DE-PFIZER INC-2012256365

PATIENT
  Age: 35 Year
  Sex: Female
  Weight: 59 kg

DRUGS (8)
  1. GEMTUZUMAB OZOGAMICIN [Suspect]
     Indication: ACUTE MYELOID LEUKAEMIA
     Dosage: 418 MG, DAILY
     Dates: start: 20120905, end: 20120905
  2. IDARUBICIN [Suspect]
     Indication: ACUTE MYELOID LEUKAEMIA
     Dosage: 18 MG, DAILY
     Dates: start: 20120902, end: 20120902
  3. IDARUBICIN [Suspect]
     Dosage: 18 MG, DAILY
     Dates: start: 20120904, end: 20120904
  4. IDARUBICIN [Suspect]
     Dosage: 18 MG, DAILY
     Dates: start: 20120906, end: 20120906
  5. CYTARABINE [Suspect]
     Indication: ACUTE MYELOID LEUKAEMIA
     Dosage: 160 MG, DAILY
     Dates: start: 20120902, end: 20120908
  6. ETOPOSIDE [Suspect]
     Indication: ACUTE MYELOID LEUKAEMIA
     Dosage: 160 MG, DAILY
     Dates: start: 20120902, end: 20120904
  7. ATRA [Suspect]
     Indication: ACUTE MYELOID LEUKAEMIA
     Dosage: 70 MG, DAILY
     Dates: start: 20120907, end: 20120909
  8. ATRA [Suspect]
     Dosage: 20 MG, DAILY
     Dates: start: 20120910, end: 20120922

REACTIONS (1)
  - Thrombocytopenia [Recovered/Resolved]
